FAERS Safety Report 4512324-8 (Version None)
Quarter: 2004Q4

REPORT INFORMATION
  Report Type: 
  Country: None (occurrence: None)
  Receive Date: 20041123
  Receipt Date: 20041112
  Transmission Date: 20050328
  Serious: Yes (Hospitalization)
  Sender: FDA-Public Use
  Company Number: 2004PK01944

PATIENT
  Age: 54 Year
  Sex: Female

DRUGS (8)
  1. IRESSA [Suspect]
     Indication: NON-SMALL CELL LUNG CANCER
     Dosage: 250 MG DAILY, PO
     Route: 048
     Dates: start: 20040911
  2. TAMOXIFEN CITRATE [Concomitant]
  3. DEXAMETHASONE [Concomitant]
  4. MORPHINE [Concomitant]
  5. DIGITOXINE [Concomitant]
  6. FUROSEMIDE [Concomitant]
  7. SALMETEROL [Concomitant]
  8. TROSPIUM [Concomitant]

REACTIONS (1)
  - ANAEMIA [None]
